FAERS Safety Report 8831262 (Version 1)
Quarter: 2012Q4

REPORT INFORMATION
  Report Type: 
  Country: US (occurrence: US)
  Receive Date: 20121008
  Receipt Date: 20121008
  Transmission Date: 20130627
  Serious: Yes (Hospitalization, Other)
  Sender: FDA-Public Use
  Company Number: US-PFIZER INC-2012244287

PATIENT
  Age: 48 Year
  Sex: Female
  Weight: 63.95 kg

DRUGS (12)
  1. INLYTA [Suspect]
     Indication: RENAL CELL CARCINOMA
     Dosage: 5 mg, 2x/day
  2. CLONIDINE [Concomitant]
     Indication: HYPERTENSION
     Dosage: 0.2 mg, 2x/day
  3. LOPRESSOR [Concomitant]
     Indication: HYPERTENSION
     Dosage: 25 mg, daily
  4. GABAPENTIN [Concomitant]
     Dosage: 300 mg, 2x/day
  5. SYNTHROID [Concomitant]
     Indication: HYPERTHYROIDISM
     Dosage: 150 mg, daily
  6. MEGACE [Concomitant]
     Dosage: 400 mg, daily
  7. PROTONIX [Concomitant]
     Dosage: 40 mg, 2x/day
  8. BACTRIM DS [Concomitant]
     Dosage: UNK, 3x/week on Mon, Wed and Fri
  9. ROCEPHIN [Concomitant]
     Dosage: 1 g, 2x/day
  10. LEVAQUIN [Concomitant]
     Dosage: 750 mg, 2x/day
  11. ACETYLSALICYLIC ACID [Concomitant]
     Dosage: 25 mg, daily
  12. DEXAMETHASONE [Concomitant]
     Dosage: 1 mg, daily

REACTIONS (6)
  - Pneumothorax [Unknown]
  - Nasopharyngitis [Unknown]
  - Decreased appetite [Unknown]
  - Asthenia [Unknown]
  - Nausea [Unknown]
  - Vomiting [Unknown]
